FAERS Safety Report 15465617 (Version 2)
Quarter: 2018Q4

REPORT INFORMATION
  Report Type: Spontaneous
  Country: US (occurrence: US)
  Receive Date: 20181004
  Receipt Date: 20181030
  Transmission Date: 20190204
  Serious: No
  Sender: FDA-Public Use
  Company Number: US-GLAXOSMITHKLINE-US2018177108

PATIENT
  Age: 56 Year
  Sex: Female
  Weight: 86.17 kg

DRUGS (1)
  1. FLOVENT [Suspect]
     Active Substance: FLUTICASONE PROPIONATE
     Indication: ASTHMA
     Dosage: 1 PUFF(S), BID
     Route: 055
     Dates: start: 20180926, end: 20180929

REACTIONS (7)
  - Feeling abnormal [Unknown]
  - Limb discomfort [Not Recovered/Not Resolved]
  - Back pain [Unknown]
  - Renal pain [Unknown]
  - Gait disturbance [Unknown]
  - Pain [Unknown]
  - Musculoskeletal chest pain [Unknown]

NARRATIVE: CASE EVENT DATE: 201809
